FAERS Safety Report 14551837 (Version 1)
Quarter: 2018Q1

REPORT INFORMATION
  Report Type: Spontaneous
  Country: US (occurrence: US)
  Receive Date: 20180220
  Receipt Date: 20180220
  Transmission Date: 20180509
  Serious: No
  Sender: FDA-Public Use
  Company Number: US-PFIZER INC-2018067166

PATIENT
  Age: 46 Year
  Sex: Male
  Weight: 91 kg

DRUGS (1)
  1. XELJANZ [Suspect]
     Active Substance: TOFACITINIB CITRATE
     Indication: ALOPECIA
     Dosage: 5 MG, 2X/DAY (APPROXIMATELY TWO YEARS AGO)
     Route: 048
     Dates: start: 2016, end: 201711

REACTIONS (3)
  - Influenza [Unknown]
  - Nasopharyngitis [Unknown]
  - Product use in unapproved indication [Unknown]

NARRATIVE: CASE EVENT DATE: 2016
